FAERS Safety Report 5881398-4 (Version None)
Quarter: 2008Q3

REPORT INFORMATION
  Report Type: 
  Country: None (occurrence: None)
  Receive Date: 20080912
  Receipt Date: 20080807
  Transmission Date: 20090109
  Serious: Yes (Other)
  Sender: FDA-Public Use
  Company Number: US-ABBOTT-08P-163-0460031-00

PATIENT
  Sex: Female
  Weight: 72.64 kg

DRUGS (2)
  1. HUMIRA [Suspect]
     Indication: RHEUMATOID ARTHRITIS
     Route: 058
     Dates: start: 20080101, end: 20080301
  2. SULPHSALZINE [Concomitant]
     Indication: RHEUMATOID ARTHRITIS

REACTIONS (7)
  - DECREASED APPETITE [None]
  - DIZZINESS [None]
  - DYSKINESIA [None]
  - GENITAL HAEMORRHAGE [None]
  - HYPOAESTHESIA [None]
  - NAUSEA [None]
  - OVARIAN NEOPLASM [None]
